FAERS Safety Report 16014637 (Version 2)
Quarter: 2019Q1

REPORT INFORMATION
  Report Type: Spontaneous
  Country: US (occurrence: US)
  Receive Date: 20190227
  Receipt Date: 20190318
  Transmission Date: 20190418
  Serious: No
  Sender: FDA-Public Use
  Company Number: US-GE HEALTHCARE LIFE SCIENCES-2019CSU000931

PATIENT
  Age: 50 Year
  Sex: Female

DRUGS (2)
  1. OPTISON [Suspect]
     Active Substance: ALBUMIN HUMAN
     Indication: ECHOCARDIOGRAM
     Dosage: 3 ML (DILUTED), SINGLE
     Route: 042
     Dates: start: 20190128, end: 20190128
  2. OPTISON [Suspect]
     Active Substance: ALBUMIN HUMAN
     Indication: CARDIAC DISORDER

REACTIONS (2)
  - Nausea [Recovered/Resolved]
  - Vomiting [Recovered/Resolved]

NARRATIVE: CASE EVENT DATE: 20190128
